FAERS Safety Report 13617977 (Version 1)
Quarter: 2017Q2

REPORT INFORMATION
  Report Type: Spontaneous
  Country: FR (occurrence: FR)
  Receive Date: 20170606
  Receipt Date: 20170606
  Transmission Date: 20170830
  Serious: Yes (Hospitalization)
  Sender: FDA-Public Use
  Company Number: FR-ASTRAZENECA-2017SE58806

PATIENT
  Age: 8363 Day
  Sex: Male

DRUGS (14)
  1. VENTOLINE [Concomitant]
     Active Substance: ALBUTEROL
     Indication: BRONCHOSPASM
     Route: 055
     Dates: start: 2016
  2. SODIUM BICARBONATE. [Concomitant]
     Active Substance: SODIUM BICARBONATE
     Indication: PANCREATIC FAILURE
     Route: 048
     Dates: start: 2016
  3. TACROLIMUS. [Concomitant]
     Active Substance: TACROLIMUS
     Indication: LIVER TRANSPLANT REJECTION
     Route: 048
  4. COLISTIMETHATE SODIUM. [Concomitant]
     Active Substance: COLISTIMETHATE SODIUM
     Indication: LUNG INFECTION
     Dosage: 1 MILLION IU/ BID
     Route: 055
     Dates: start: 2016
  5. INEXIUM [Suspect]
     Active Substance: ESOMEPRAZOLE
     Indication: PEPTIC ULCER
     Route: 048
     Dates: start: 20150120
  6. CREON [Concomitant]
     Active Substance: PANCRELIPASE AMYLASE\PANCRELIPASE LIPASE\PANCRELIPASE PROTEASE
     Indication: PANCREATIC FAILURE
     Route: 048
  7. ALVITYL [Concomitant]
     Indication: MULTI-VITAMIN DEFICIENCY
     Route: 048
  8. VITAMIN K [Concomitant]
     Active Substance: PHYTONADIONE
     Indication: VITAMIN K DEFICIENCY
     Route: 048
  9. PREDNISONE. [Concomitant]
     Active Substance: PREDNISONE
     Indication: LIVER TRANSPLANT REJECTION
     Route: 048
     Dates: start: 2016
  10. INDACATEROL MALEATE [Concomitant]
     Active Substance: INDACATEROL MALEATE
     Indication: CYSTIC FIBROSIS LUNG
     Route: 048
     Dates: start: 2016
  11. IVACAFTOR [Suspect]
     Active Substance: IVACAFTOR
     Indication: CYSTIC FIBROSIS
     Route: 048
     Dates: start: 20170411, end: 20170413
  12. UVEDOSE [Concomitant]
     Active Substance: CHOLECALCIFEROL
     Indication: HYPOVITAMINOSIS
     Route: 048
  13. TOBI [Concomitant]
     Active Substance: TOBRAMYCIN
     Indication: LUNG INFECTION
  14. TOCO [Concomitant]
     Active Substance: UNSPECIFIED INGREDIENT
     Indication: HYPOVITAMINOSIS
     Route: 048

REACTIONS (1)
  - Peptic ulcer [Recovered/Resolved]

NARRATIVE: CASE EVENT DATE: 20170412
